FAERS Safety Report 10525612 (Version 2)
Quarter: 2014Q4

REPORT INFORMATION
  Report Type: Report from Study
  Country: FR (occurrence: FR)
  Receive Date: 20141017
  Receipt Date: 20141017
  Transmission Date: 20150528
  Serious: Yes (Other)
  Sender: FDA-Public Use
  Company Number: FR-ABBVIE-12P-056-0928305-02

PATIENT
  Sex: Female

DRUGS (5)
  1. DIANTALVIC [Concomitant]
     Indication: ABDOMINAL PAIN
     Dosage: 400MG/30MG
     Dates: start: 2009
  2. DIANTALVIC [Concomitant]
     Indication: CROHN^S DISEASE
  3. SMECTA [Concomitant]
     Active Substance: MONTMORILLONITE
     Indication: DIARRHOEA
     Dates: start: 20090303, end: 2010
  4. HUMIRA [Suspect]
     Active Substance: ADALIMUMAB
     Indication: CROHN^S DISEASE
     Route: 058
     Dates: start: 20051216, end: 20091126
  5. SMECTA [Concomitant]
     Active Substance: MONTMORILLONITE
     Indication: CROHN^S DISEASE

REACTIONS (2)
  - Anal inflammation [Unknown]
  - Anal stenosis [Unknown]

NARRATIVE: CASE EVENT DATE: 20100601
